FAERS Safety Report 5377008-5 (Version None)
Quarter: 2007Q3

REPORT INFORMATION
  Report Type: 
  Country: None (occurrence: None)
  Receive Date: 20070703
  Receipt Date: 20070628
  Transmission Date: 20080115
  Serious: Yes (Hospitalization)
  Sender: FDA-Public Use
  Company Number: NO-JNJFOC-20070606725

PATIENT
  Sex: Male

DRUGS (4)
  1. HALDOL [Suspect]
     Indication: TIC
  2. CITALOPRAM HYDROBROMIDE [Concomitant]
  3. MIANSERIN HYDROCHLORIDE [Concomitant]
  4. VENLAFAXIINE HCL [Concomitant]

REACTIONS (2)
  - SUICIDAL IDEATION [None]
  - SUICIDE ATTEMPT [None]
